FAERS Safety Report 4954123-9 (Version None)
Quarter: 2006Q1

REPORT INFORMATION
  Report Type: 
  Country: None (occurrence: None)
  Receive Date: 20060327
  Receipt Date: 20060315
  Transmission Date: 20060701
  Serious: Yes (Hospitalization)
  Sender: FDA-Public Use
  Company Number: GB-GLAXOSMITHKLINE-B0417122A

PATIENT
  Sex: Male
  Weight: 3.6 kg

DRUGS (4)
  1. SEROXAT [Suspect]
  2. VITAMIN K [Concomitant]
     Dosage: 1MG SINGLE DOSE
     Dates: start: 20060222, end: 20060222
  3. GENTAMICIN [Concomitant]
     Dosage: 14MG PER DAY
     Dates: start: 20060222, end: 20060224
  4. BENZYLPENICILLIN [Concomitant]
     Dosage: 180MG TWICE PER DAY
     Dates: start: 20060222, end: 20060224

REACTIONS (7)
  - AGITATION [None]
  - DRUG EXPOSURE DURING PREGNANCY [None]
  - FEELING JITTERY [None]
  - HYPERTONIA [None]
  - IRRITABILITY [None]
  - POOR SUCKING REFLEX [None]
  - SPINA BIFIDA OCCULTA [None]
